FAERS Safety Report 7034340-7 (Version None)
Quarter: 2010Q4

REPORT INFORMATION
  Report Type: 
  Country: None (occurrence: None)
  Receive Date: 20101008
  Receipt Date: 20100924
  Transmission Date: 20110411
  Serious: Yes (Hospitalization)
  Sender: FDA-Public Use
  Company Number: PHHY2010FR65821

PATIENT
  Age: 73 Year
  Sex: Female

DRUGS (4)
  1. PARLODEL [Suspect]
     Dosage: UNK
     Route: 048
     Dates: start: 19910101, end: 20090101
  2. SINEMET [Suspect]
     Dosage: UNK
     Dates: start: 19910101
  3. SELEGILINE [Suspect]
     Dosage: UNK
     Dates: start: 19910101
  4. NEO-MERCAZOLE TAB [Suspect]
     Dosage: UNK
     Dates: start: 20000101

REACTIONS (5)
  - DYSPNOEA [None]
  - PLEURAL EFFUSION [None]
  - PLEURAL FIBROSIS [None]
  - PULMONARY ARTERIAL HYPERTENSION [None]
  - SYSTEMIC LUPUS ERYTHEMATOSUS [None]
